FAERS Safety Report 14766564 (Version 1)
Quarter: 2018Q2

REPORT INFORMATION
  Report Type: Spontaneous
  Country: GB (occurrence: GB)
  Receive Date: 20180416
  Receipt Date: 20180416
  Transmission Date: 20180711
  Serious: Yes (Other)
  Sender: FDA-Public Use
  Company Number: GB-TEVA-2018-GB-882273

PATIENT
  Age: 66 Year
  Sex: Male

DRUGS (10)
  1. KETOCONAZOLE. [Concomitant]
     Active Substance: KETOCONAZOLE
  2. SILDENAFIL. [Concomitant]
     Active Substance: SILDENAFIL
     Route: 065
  3. TICAGRELOR. [Concomitant]
     Active Substance: TICAGRELOR
     Route: 065
  4. BISOPROLOL [Concomitant]
     Active Substance: BISOPROLOL
     Route: 065
  5. RAMIPRIL. [Concomitant]
     Active Substance: RAMIPRIL
     Route: 065
  6. LANSOPRAZOLE. [Concomitant]
     Active Substance: LANSOPRAZOLE
     Route: 065
  7. ATORVASTATIN CALCIUM. [Suspect]
     Active Substance: ATORVASTATIN CALCIUM
     Indication: BLOOD CHOLESTEROL INCREASED
     Route: 048
     Dates: start: 20180209
  8. VARENICLINE [Concomitant]
     Active Substance: VARENICLINE
     Route: 065
  9. GLYCERYL TRINITRATE [Concomitant]
     Active Substance: NITROGLYCERIN
     Route: 065
  10. CLOPIDOGREL [Concomitant]
     Active Substance: CLOPIDOGREL BISULFATE
     Route: 065

REACTIONS (4)
  - Swelling face [Recovered/Resolved]
  - Pharyngeal oedema [Recovered/Resolved]
  - Wrong technique in product usage process [Unknown]
  - Swollen tongue [Recovered/Resolved]

NARRATIVE: CASE EVENT DATE: 20180212
